FAERS Safety Report 5319475-9 (Version None)
Quarter: 2007Q2

REPORT INFORMATION
  Report Type: 
  Country: None (occurrence: None)
  Receive Date: 20070508
  Receipt Date: 20070504
  Transmission Date: 20071010
  Serious: Yes (Hospitalization)
  Sender: FDA-Public Use
  Company Number: AU-BOEHRINGER INGELHEIM PHARMACEUTICALS, INC.-2007-BP-05245AU

PATIENT
  Sex: Male
  Weight: 68.5 kg

DRUGS (9)
  1. APTIVUS/RITONAVIR CAPSULES [Suspect]
     Indication: ADVERSE EVENT
     Dosage: TPV/RTV 1000/400 MG
     Route: 048
     Dates: start: 20040930
  2. SUSTANON [Suspect]
     Indication: BLOOD TESTOSTERONE DECREASED
     Route: 030
     Dates: start: 20060401
  3. VALTREX [Concomitant]
     Indication: HERPES SIMPLEX
     Route: 048
     Dates: start: 19890101
  4. VENTOLIN [Concomitant]
     Route: 055
  5. MK0518 (RALTEGRAVIR) [Concomitant]
     Route: 048
  6. ACIMAX (OMEPRAZOLE) [Concomitant]
     Indication: REFLUX OESOPHAGITIS
     Route: 048
     Dates: start: 19990101
  7. BACTRIM DS [Concomitant]
     Indication: ANTIFUNGAL PROPHYLAXIS
     Dosage: 400/80 MG
     Route: 048
     Dates: start: 20060101
  8. TRUVADA (EMTRICITABINE/TENOFOVIR DISOPOXIL FURNARATE) [Concomitant]
     Dosage: 300/200 MG
     Route: 048
  9. OXAPAM (OXAZEPAM) [Concomitant]
     Indication: AGORAPHOBIA
     Route: 048
     Dates: start: 19640101

REACTIONS (1)
  - SUBCUTANEOUS ABSCESS [None]
